APPROVED DRUG PRODUCT: TEMAZEPAM
Active Ingredient: TEMAZEPAM
Strength: 7.5MG
Dosage Form/Route: CAPSULE;ORAL
Application: A211542 | Product #001 | TE Code: AB
Applicant: ALEMBIC PHARMACEUTICALS LTD
Approved: Nov 23, 2018 | RLD: No | RS: No | Type: RX